FAERS Safety Report 6341967-4 (Version None)
Quarter: 2009Q3

REPORT INFORMATION
  Report Type: 
  Country: None (occurrence: None)
  Receive Date: 20090904
  Receipt Date: 20090901
  Transmission Date: 20100115
  Serious: Yes (Other)
  Sender: FDA-Public Use
  Company Number: US-AMGEN-US362646

PATIENT
  Sex: Female

DRUGS (3)
  1. PROCRIT [Suspect]
     Indication: ANAEMIA
  2. RIBAVIRIN [Suspect]
     Dates: start: 20080926
  3. PEGASYS [Suspect]
     Dates: start: 20080926

REACTIONS (6)
  - ANAEMIA [None]
  - DEPRESSED MOOD [None]
  - HEART RATE INCREASED [None]
  - PAIN IN EXTREMITY [None]
  - PALPITATIONS [None]
  - THROMBOSIS [None]
